FAERS Safety Report 8214117-7 (Version None)
Quarter: 2012Q1

REPORT INFORMATION
  Report Type: 
  Country: None (occurrence: None)
  Receive Date: 20120314
  Receipt Date: 20120314
  Transmission Date: 20120608
  Serious: Yes (Hospitalization)
  Sender: FDA-Public Use
  Company Number: None

PATIENT
  Age: 19 Year
  Sex: Male
  Weight: 65.3 kg

DRUGS (4)
  1. CIPROFLOXACIN [Concomitant]
  2. BACTRIM DS [Suspect]
     Indication: ARTHROPOD BITE
     Dosage: 2 TABLETS BID PO RECENT
     Route: 048
  3. AUGMENTIN '125' [Concomitant]
  4. BACTROBAN [Concomitant]

REACTIONS (3)
  - TACHYCARDIA [None]
  - PYREXIA [None]
  - NEUTROPENIA [None]
